FAERS Safety Report 10491577 (Version 1)
Quarter: 2014Q4

REPORT INFORMATION
  Report Type: Spontaneous
  Country: US (occurrence: US)
  Receive Date: 20141002
  Receipt Date: 20141002
  Transmission Date: 20150528
  Serious: No
  Sender: FDA-Public Use
  Company Number: US-GLAXOSMITHKLINE-A1055781A

PATIENT
  Age: 57 Year
  Sex: Male

DRUGS (4)
  1. ADVAIR HFA [Suspect]
     Active Substance: FLUTICASONE PROPIONATE\SALMETEROL XINAFOATE
     Indication: CHRONIC OBSTRUCTIVE PULMONARY DISEASE
     Dosage: 1PUFF TWICE PER DAY
     Route: 055
     Dates: start: 201301
  2. ZOLOFT [Suspect]
     Active Substance: SERTRALINE HYDROCHLORIDE
  3. MULTIVITAMIN [Concomitant]
     Active Substance: VITAMINS
  4. VENTOLIN [Suspect]
     Active Substance: ALBUTEROL SULFATE
     Indication: DYSPNOEA
     Dosage: 2PUFF AS REQUIRED
     Route: 055
     Dates: start: 201301

REACTIONS (5)
  - Psychomotor hyperactivity [Unknown]
  - Euphoric mood [Not Recovered/Not Resolved]
  - Anxiety [Unknown]
  - Irritability [Unknown]
  - Tremor [Unknown]

NARRATIVE: CASE EVENT DATE: 201310
